FAERS Safety Report 9130862 (Version 1)
Quarter: 2013Q1

REPORT INFORMATION
  Report Type: Spontaneous
  Country: US (occurrence: US)
  Receive Date: 20130301
  Receipt Date: 20130301
  Transmission Date: 20140127
  Serious: No
  Sender: FDA-Public Use
  Company Number: US-009507513-1302USA010570

PATIENT
  Sex: Female

DRUGS (8)
  1. SAPHRIS [Suspect]
     Dosage: 10 MG, UNK
     Route: 060
     Dates: start: 201202, end: 201303
  2. SAPHRIS [Suspect]
     Dosage: 5 MG, UNK
     Route: 060
     Dates: start: 201202, end: 201303
  3. ABILIFY [Concomitant]
  4. STELAZINE [Concomitant]
  5. KLONOPIN [Concomitant]
  6. PAXIL [Concomitant]
  7. MOBIC [Concomitant]
  8. LITHIUM [Concomitant]

REACTIONS (4)
  - Chest pain [Recovered/Resolved]
  - Joint crepitation [Recovered/Resolved]
  - Fall [Unknown]
  - Local swelling [Recovered/Resolved]
